FAERS Safety Report 10419954 (Version 1)
Quarter: 2014Q3

REPORT INFORMATION
  Report Type: Spontaneous
  Country: US (occurrence: US)
  Receive Date: 20140829
  Receipt Date: 20140829
  Transmission Date: 20150326
  Serious: Yes (Other)
  Sender: FDA-Public Use
  Company Number: US-ROCHE-1452130

PATIENT
  Sex: Female

DRUGS (12)
  1. LYRICA [Concomitant]
     Active Substance: PREGABALIN
     Indication: NEURALGIA
     Dosage: AS NEEDED
     Route: 065
  2. CLONAZEPAM. [Suspect]
     Active Substance: CLONAZEPAM
     Indication: PRODUCT USED FOR UNKNOWN INDICATION
     Route: 065
  3. XANAX [Concomitant]
     Active Substance: ALPRAZOLAM
  4. NORCO [Concomitant]
     Active Substance: ACETAMINOPHEN\HYDROCODONE BITARTRATE
     Indication: PAIN
  5. BENADRYL [Concomitant]
     Active Substance: DIPHENHYDRAMINE HYDROCHLORIDE
  6. HYDROXYZINE [Concomitant]
     Active Substance: HYDROXYZINE\HYDROXYZINE HYDROCHLORIDE
     Indication: PRURITUS
  7. PROMETHAZINE [Concomitant]
     Active Substance: PROMETHAZINE\PROMETHAZINE HYDROCHLORIDE
     Dosage: AS NEEDED
     Route: 065
  8. ACETAMINOPHEN. [Concomitant]
     Active Substance: ACETAMINOPHEN
  9. KLONOPIN [Suspect]
     Active Substance: CLONAZEPAM
     Indication: ANXIETY
     Dosage: 0.5 MG AT 10, 0.5 MG AT 2, 1 MG AT NIGHT
     Route: 065
  10. TYLENOL [Concomitant]
     Active Substance: ACETAMINOPHEN
  11. MENEST [Concomitant]
     Active Substance: ESTROGENS, ESTERIFIED
     Dosage: HALF
     Route: 065
  12. PREDNISONE. [Concomitant]
     Active Substance: PREDNISONE
     Route: 065

REACTIONS (10)
  - Lung neoplasm malignant [Not Recovered/Not Resolved]
  - Knee arthroplasty [Recovered/Resolved]
  - Arthralgia [Unknown]
  - Neuralgia [Unknown]
  - Somnolence [Unknown]
  - Intervertebral disc degeneration [Not Recovered/Not Resolved]
  - Drug ineffective [Unknown]
  - Headache [Unknown]
  - Heart rate increased [Unknown]
  - Lung operation [Recovered/Resolved]
